FAERS Safety Report 18602449 (Version 1)
Quarter: 2020Q4

REPORT INFORMATION
  Report Type: Spontaneous
  Country: US (occurrence: US)
  Receive Date: 20201210
  Receipt Date: 20201210
  Transmission Date: 20210114
  Serious: No
  Sender: FDA-Public Use
  Company Number: US-PERRIGO-20US012321

PATIENT
  Age: 27 Year
  Sex: Female
  Weight: 136.05 kg

DRUGS (4)
  1. ALBUTEROL SULFATE. [Suspect]
     Active Substance: ALBUTEROL SULFATE
     Dosage: 180 TO 270 MCG, PRN
     Route: 055
     Dates: start: 20200530, end: 202006
  2. ALBUTEROL SULFATE. [Suspect]
     Active Substance: ALBUTEROL SULFATE
     Dosage: 3 TO 4 PARTIAL SPRAYS, PRN
     Route: 055
     Dates: start: 202004, end: 202005
  3. ALBUTEROL SULFATE. [Suspect]
     Active Substance: ALBUTEROL SULFATE
     Dosage: 3 TO 4 PARTIAL SPRAYS, PRN
     Route: 055
     Dates: start: 202006, end: 202007
  4. ALBUTEROL SULFATE. [Suspect]
     Active Substance: ALBUTEROL SULFATE
     Indication: ASTHMA
     Dosage: 180 TO 270 MCG, PRN
     Route: 055
     Dates: start: 202003, end: 202004

REACTIONS (2)
  - Device delivery system issue [Unknown]
  - Incorrect dose administered [Recovered/Resolved]

NARRATIVE: CASE EVENT DATE: 202004
